FAERS Safety Report 13060451 (Version 1)
Quarter: 2016Q4

REPORT INFORMATION
  Report Type: Spontaneous
  Country: US (occurrence: US)
  Receive Date: 20161224
  Receipt Date: 20161224
  Transmission Date: 20170207
  Serious: No
  Sender: FDA-Public Use
  Company Number: ALCN2016US009124

PATIENT
  Sex: Female

DRUGS (1)
  1. DUREZOL [Suspect]
     Active Substance: DIFLUPREDNATE
     Indication: CONJUNCTIVITIS VIRAL
     Dosage: UNK UNK, QID
     Route: 047

REACTIONS (2)
  - Eye pruritus [Unknown]
  - Eye pain [Unknown]
